FAERS Safety Report 12598267 (Version 1)
Quarter: 2016Q3

REPORT INFORMATION
  Report Type: Spontaneous
  Country: US (occurrence: None)
  Receive Date: 20160726
  Receipt Date: 20160726
  Transmission Date: 20161109
  Serious: Yes (Other)
  Sender: FDA-Public Use
  Company Number: None

PATIENT
  Age: 74 Year
  Sex: Male
  Weight: 92.99 kg

DRUGS (3)
  1. LOSARTAN POTASSIUM 100 MG., 100 MG [Suspect]
     Active Substance: LOSARTAN POTASSIUM
     Indication: HYPERTENSION
     Route: 048
  2. INSPRA [Concomitant]
     Active Substance: EPLERENONE
  3. ALUPURINAL [Concomitant]

REACTIONS (7)
  - Salt craving [None]
  - Blood sodium decreased [None]
  - Product quality issue [None]
  - Blood pressure increased [None]
  - Asthenia [None]
  - Blood potassium increased [None]
  - Micturition disorder [None]

NARRATIVE: CASE EVENT DATE: 20160622
